FAERS Safety Report 8923505 (Version 1)
Quarter: 2012Q4

REPORT INFORMATION
  Report Type: 
  Country: US (occurrence: US)
  Receive Date: 20121123
  Receipt Date: 20121123
  Transmission Date: 20130627
  Serious: Yes (Other)
  Sender: FDA-Public Use
  Company Number: US-PFIZER INC-2012292089

PATIENT
  Age: 50 Year
  Sex: Female
  Weight: 63.49 kg

DRUGS (3)
  1. LYRICA [Suspect]
     Indication: NERVE PAIN
     Dosage: 300 mg, 2x/day
     Route: 048
  2. LIPITOR [Concomitant]
     Indication: HIGH CHOLESTEROL
     Dosage: UNK
  3. AMLODIPINE [Concomitant]
     Indication: BLOOD PRESSURE HIGH
     Dosage: UNK

REACTIONS (6)
  - Emphysema [Unknown]
  - Chronic obstructive pulmonary disease [Unknown]
  - Respiratory arrest [Unknown]
  - Back disorder [Unknown]
  - Pain [Unknown]
  - Sciatic nerve neuropathy [Not Recovered/Not Resolved]
